FAERS Safety Report 18790238 (Version 1)
Quarter: 2021Q1

REPORT INFORMATION
  Report Type: Other
  Country: US (occurrence: US)
  Receive Date: 20210125
  Receipt Date: 20210125
  Transmission Date: 20210419
  Serious: Yes (Hospitalization)
  Sender: FDA-Public Use
  Company Number: US-ACORDA-ACO_167503_2021

PATIENT

DRUGS (1)
  1. AMPYRA [Suspect]
     Active Substance: DALFAMPRIDINE
     Indication: PRODUCT USED FOR UNKNOWN INDICATION
     Dosage: UNK
     Route: 065

REACTIONS (9)
  - Pyrexia [Unknown]
  - Hypertension [Unknown]
  - Muscle spasms [Unknown]
  - Neurological symptom [Unknown]
  - Tachycardia [Unknown]
  - Condition aggravated [Unknown]
  - Infection [Unknown]
  - Ear pain [Unknown]
  - Arthropathy [Unknown]
